FAERS Safety Report 19001648 (Version 1)
Quarter: 2021Q1

REPORT INFORMATION
  Report Type: Spontaneous
  Country: US (occurrence: US)
  Receive Date: 20210312
  Receipt Date: 20210312
  Transmission Date: 20210420
  Serious: No
  Sender: FDA-Public Use
  Company Number: US-FARMAPROD-202011-1536

PATIENT
  Sex: Female

DRUGS (17)
  1. OFLOXACIN. [Concomitant]
     Active Substance: OFLOXACIN
  2. SYNTHROID [Concomitant]
     Active Substance: LEVOTHYROXINE SODIUM
  3. OXERVATE [Suspect]
     Active Substance: CENEGERMIN-BKBJ
     Indication: DRY EYE
  4. BETIMOL [Concomitant]
     Active Substance: TIMOLOL
  5. ASPIRINE [Concomitant]
     Active Substance: ASPIRIN
  6. TYLENOL [Concomitant]
     Active Substance: ACETAMINOPHEN
  7. VITAMIN D3 CRYSTALS [Concomitant]
  8. BIOTIN [Concomitant]
     Active Substance: BIOTIN
  9. MURO?128 [Concomitant]
  10. VITAMIN B12 [Concomitant]
     Active Substance: CYANOCOBALAMIN
  11. OXERVATE [Suspect]
     Active Substance: CENEGERMIN-BKBJ
     Indication: CORNEAL TRANSPLANT
     Route: 047
     Dates: start: 20201010
  12. OXERVATE [Suspect]
     Active Substance: CENEGERMIN-BKBJ
     Indication: OPEN ANGLE GLAUCOMA
  13. PRED FORTE [Concomitant]
     Active Substance: PREDNISOLONE ACETATE
     Dosage: DROPS SUSPENSION
  14. MAGNESIUM [Concomitant]
     Active Substance: MAGNESIUM
  15. NEXIUM [Concomitant]
     Active Substance: ESOMEPRAZOLE MAGNESIUM
     Dosage: ORAL SUSPENSION PACKET
  16. NORVASC [Concomitant]
     Active Substance: AMLODIPINE BESYLATE
  17. CRESTOR [Concomitant]
     Active Substance: ROSUVASTATIN CALCIUM

REACTIONS (1)
  - Eye pain [Unknown]
